FAERS Safety Report 20589359 (Version 1)
Quarter: 2022Q1

REPORT INFORMATION
  Report Type: Spontaneous
  Country: IT (occurrence: IT)
  Receive Date: 20220314
  Receipt Date: 20220314
  Transmission Date: 20220423
  Serious: Yes (Life-Threatening, Hospitalization, Other)
  Sender: FDA-Public Use
  Company Number: IT-Accord-257229

PATIENT
  Age: 16 Year
  Sex: Female
  Weight: 43.5 kg

DRUGS (3)
  1. ETOPOSIDE [Suspect]
     Active Substance: ETOPOSIDE
     Indication: Osteosarcoma recurrent
     Dates: start: 20210601, end: 20210603
  2. LENVATINIB [Suspect]
     Active Substance: LENVATINIB
     Indication: Osteosarcoma recurrent
     Route: 048
     Dates: start: 20210601, end: 20210630
  3. IFOSFAMIDE [Suspect]
     Active Substance: IFOSFAMIDE
     Indication: Osteosarcoma recurrent
     Route: 042
     Dates: start: 20210601, end: 20210603

REACTIONS (7)
  - Deep vein thrombosis [Recovered/Resolved with Sequelae]
  - Gallbladder obstruction [Recovered/Resolved with Sequelae]
  - Posterior reversible encephalopathy syndrome [Recovered/Resolved]
  - Febrile neutropenia [Recovered/Resolved]
  - Hypokalaemia [Recovered/Resolved]
  - Respiratory failure [Recovered/Resolved]
  - Platelet count decreased [Recovered/Resolved]

NARRATIVE: CASE EVENT DATE: 20210608
